FAERS Safety Report 8524693 (Version 2)
Quarter: 2012Q4

REPORT INFORMATION
  Report Type: 
  Country: BR (occurrence: BR)
  Receive Date: 20120423
  Receipt Date: 20121017
  Transmission Date: 20130627
  Serious: Yes (Other)
  Sender: FDA-Public Use
  Company Number: BR-AMGEN-BRASP2012023398

PATIENT
  Age: 57 Year
  Sex: Male
  Weight: 90 kg

DRUGS (6)
  1. ENBREL [Suspect]
     Indication: RHEUMATOID ARTHRITIS
     Dosage: 50 mg, once weekly
     Route: 058
     Dates: end: 201110
  2. ENBREL [Suspect]
     Dosage: 50 mg, weekly
     Dates: start: 20111209, end: 201112
  3. ENBREL [Suspect]
     Dosage: 50 mg, qwk
  4. AAS [Suspect]
     Dosage: UNK
  5. NIMESULIDE [Concomitant]
     Dosage: UNK
  6. ARTROSIL                           /00548501/ [Concomitant]
     Dosage: when having rheumatic crisis

REACTIONS (8)
  - Swollen tongue [Unknown]
  - Generalised oedema [Unknown]
  - Red blood cell sedimentation rate increased [Unknown]
  - Cardiac disorder [Unknown]
  - Hypersensitivity [Unknown]
  - Swelling face [Unknown]
  - Pruritus [Unknown]
  - Drug hypersensitivity [Unknown]
